FAERS Safety Report 5416361-0 (Version None)
Quarter: 2007Q3

REPORT INFORMATION
  Report Type: 
  Country: None (occurrence: None)
  Receive Date: 20070816
  Receipt Date: 20070809
  Transmission Date: 20080115
  Serious: Yes (Other)
  Sender: FDA-Public Use
  Company Number: PHEH2007US10963

PATIENT
  Sex: Male

DRUGS (1)
  1. ZOMETA [Suspect]

REACTIONS (6)
  - DECREASED INTEREST [None]
  - EMOTIONAL DISTRESS [None]
  - LIFE EXPECTANCY SHORTENED [None]
  - OSTEONECROSIS [None]
  - OVERDOSE [None]
  - PAIN [None]
